FAERS Safety Report 17913447 (Version 1)
Quarter: 2020Q2

REPORT INFORMATION
  Report Type: Spontaneous
  Country: US (occurrence: US)
  Receive Date: 20200618
  Receipt Date: 20200618
  Transmission Date: 20200714
  Serious: No
  Sender: FDA-Public Use
  Company Number: US-THERAPEUTICSMD-2020TMD02179

PATIENT
  Age: 53 Year
  Sex: Female
  Weight: 65.76 kg

DRUGS (6)
  1. IMVEXXY [Suspect]
     Active Substance: ESTRADIOL
     Indication: VULVOVAGINAL DRYNESS
     Dosage: 4 ?G, 1X/DAY, BETWEEN 6-7 AM, BEFORE BED, SAMPLES
     Route: 067
     Dates: start: 20200504
  2. VITAMIN D [Concomitant]
     Active Substance: VITAMIN D NOS
  3. IMVEXXY [Suspect]
     Active Substance: ESTRADIOL
     Indication: DYSPAREUNIA
  4. GLUCOSAMINE [Concomitant]
     Active Substance: GLUCOSAMINE
  5. IMVEXXY [Suspect]
     Active Substance: ESTRADIOL
     Indication: GENITAL PAIN
  6. FISH OIL [Concomitant]
     Active Substance: FISH OIL

REACTIONS (2)
  - Product administration error [Not Recovered/Not Resolved]
  - Muscle tightness [Not Recovered/Not Resolved]

NARRATIVE: CASE EVENT DATE: 20200504
